FAERS Safety Report 11327024 (Version 3)
Quarter: 2015Q4

REPORT INFORMATION
  Report Type: Spontaneous
  Country: GB (occurrence: GB)
  Receive Date: 20150731
  Receipt Date: 20151026
  Transmission Date: 20160304
  Serious: Yes (Hospitalization, Other)
  Sender: FDA-Public Use
  Company Number: GB-TEVA-580840ACC

PATIENT
  Age: 25 Year
  Sex: Male

DRUGS (2)
  1. BACLOFEN. [Suspect]
     Active Substance: BACLOFEN
     Indication: MUSCLE SPASTICITY
     Dosage: 144 UG, QD
     Route: 038
  2. BACLOFEN. [Suspect]
     Active Substance: BACLOFEN
     Dosage: 660 UG, QD
     Route: 038
     Dates: start: 2008

REACTIONS (5)
  - Medical device site oedema [Recovering/Resolving]
  - Post procedural complication [Recovering/Resolving]
  - Medical device site haemorrhage [Recovering/Resolving]
  - Medical device site haematoma [Recovering/Resolving]
  - Therapeutic response decreased [Recovering/Resolving]

NARRATIVE: CASE EVENT DATE: 20141230
